FAERS Safety Report 7101997-1 (Version None)
Quarter: 2010Q4

REPORT INFORMATION
  Report Type: 
  Country: None (occurrence: None)
  Receive Date: 20101115
  Receipt Date: 20101110
  Transmission Date: 20110411
  Serious: No
  Sender: FDA-Public Use
  Company Number: CH-ROCHE-657975

PATIENT
  Age: 32 Year
  Sex: Female

DRUGS (1)
  1. ROACCUTAN [Suspect]
     Route: 048
     Dates: start: 20090812, end: 20090826

REACTIONS (2)
  - ABORTION INDUCED [None]
  - NO ADVERSE EVENT [None]
